FAERS Safety Report 16776634 (Version 1)
Quarter: 2019Q3

REPORT INFORMATION
  Report Type: Spontaneous
  Country: CA (occurrence: CA)
  Receive Date: 20190905
  Receipt Date: 20190905
  Transmission Date: 20191005
  Serious: Yes (Other)
  Sender: FDA-Public Use
  Company Number: CA-MYLANLABS-2019M1082969

PATIENT
  Age: 70 Year
  Sex: Female
  Weight: 63 kg

DRUGS (1)
  1. FONDAPARINUX [Suspect]
     Active Substance: FONDAPARINUX
     Indication: HEPARIN-INDUCED THROMBOCYTOPENIA
     Dosage: 7.5 MILLIGRAM, QD
     Route: 058

REACTIONS (5)
  - Disseminated intravascular coagulation [Unknown]
  - Off label use [Unknown]
  - Thrombocytopenia [Unknown]
  - Thrombosis [Unknown]
  - Therapeutic product cross-reactivity [Unknown]
